FAERS Safety Report 17537300 (Version 1)
Quarter: 2020Q1

REPORT INFORMATION
  Report Type: Report from Study
  Country: US (occurrence: US)
  Receive Date: 20200313
  Receipt Date: 20200313
  Transmission Date: 20200409
  Serious: Yes (Hospitalization)
  Sender: FDA-Public Use
  Company Number: US-BAYER-2020-015016

PATIENT
  Age: 48 Year
  Sex: Male

DRUGS (2)
  1. BETASERON [Suspect]
     Active Substance: INTERFERON BETA-1B
     Indication: MULTIPLE SCLEROSIS
     Dosage: 1 ML, QOD
     Dates: start: 20170707
  2. BETASERON [Suspect]
     Active Substance: INTERFERON BETA-1B
     Indication: MULTIPLE SCLEROSIS
     Dosage: UNK
     Dates: start: 20150701

REACTIONS (6)
  - Injection site pain [Unknown]
  - Injection site mass [Not Recovered/Not Resolved]
  - Influenza like illness [Not Recovered/Not Resolved]
  - Influenza [None]
  - Chills [Not Recovered/Not Resolved]
  - Staphylococcal infection [None]

NARRATIVE: CASE EVENT DATE: 202001
